FAERS Safety Report 5579755-9 (Version None)
Quarter: 2008Q1

REPORT INFORMATION
  Report Type: 
  Country: None (occurrence: None)
  Receive Date: 20080102
  Receipt Date: 20071226
  Transmission Date: 20080703
  Serious: Yes (Hospitalization, Other)
  Sender: FDA-Public Use
  Company Number: JP-PFIZER INC-2007099352

PATIENT
  Sex: Female
  Weight: 50.1 kg

DRUGS (14)
  1. SOLU-CORTEF [Suspect]
     Indication: PYREXIA
     Route: 042
     Dates: start: 20071107, end: 20071107
  2. SOLU-CORTEF [Suspect]
     Indication: SEPSIS
  3. ROCEPHIN [Suspect]
     Indication: PYREXIA
     Route: 042
     Dates: start: 20071107, end: 20071107
  4. ROCEPHIN [Suspect]
     Indication: SEPSIS
  5. TAKEPRON [Suspect]
     Indication: RHEUMATOID ARTHRITIS
     Route: 048
     Dates: start: 20071102, end: 20071110
  6. RHEUMATREX [Concomitant]
     Route: 048
     Dates: start: 20010101, end: 20071102
  7. AMOBAN [Concomitant]
     Route: 048
  8. DORNER [Concomitant]
     Route: 048
  9. FLOMOX [Concomitant]
     Route: 048
     Dates: start: 20071106, end: 20071111
  10. LOXONIN [Concomitant]
     Route: 048
  11. SELBEX [Concomitant]
     Route: 048
  12. PREDONINE [Concomitant]
     Route: 048
  13. CYANOCOBALAMIN [Concomitant]
     Route: 048
  14. MYSLEE [Concomitant]
     Route: 048

REACTIONS (1)
  - ERYTHEMA MULTIFORME [None]
